FAERS Safety Report 5365414-4 (Version None)
Quarter: 2007Q2

REPORT INFORMATION
  Report Type: 
  Country: None (occurrence: None)
  Receive Date: 20070621
  Receipt Date: 20070607
  Transmission Date: 20071010
  Serious: Yes (Hospitalization, Other)
  Sender: FDA-Public Use
  Company Number: US-ELI_LILLY_AND_COMPANY-US200610003102

PATIENT
  Age: 82 Year
  Sex: Female

DRUGS (9)
  1. GLUCOSAMINE W/CHONDROITIN [Concomitant]
     Dosage: 12 MG, UNK
  2. MIACALCIN [Concomitant]
  3. FORTEO [Suspect]
     Indication: OSTEOPOROSIS
     Dosage: 20 UG, UNK
     Dates: start: 20051201, end: 20061001
  4. CALCIUM CHLORIDE [Concomitant]
     Dosage: 1500 MG, DAILY (1/D)
  5. VITAMIN D [Concomitant]
     Dosage: 2000 IU, DAILY (1/D)
  6. PLAVIX [Concomitant]
     Indication: ANTICOAGULANT THERAPY
  7. COZAAR [Concomitant]
     Dosage: UNK, DAILY (1/D)
  8. PROCRIT [Concomitant]
  9. NEUROTON [Concomitant]

REACTIONS (12)
  - BACK DISORDER [None]
  - BLOOD CALCIUM INCREASED [None]
  - CALCIPHYLAXIS [None]
  - EARLY MORNING AWAKENING [None]
  - ERYTHEMA [None]
  - HYPERLIPIDAEMIA [None]
  - NEOPLASM [None]
  - PAIN [None]
  - PRURITUS [None]
  - SPINAL DEFORMITY [None]
  - WOUND COMPLICATION [None]
  - WOUND HAEMORRHAGE [None]
